FAERS Safety Report 12214322 (Version 2)
Quarter: 2016Q2

REPORT INFORMATION
  Report Type: Spontaneous
  Country: US (occurrence: US)
  Receive Date: 20160328
  Receipt Date: 20160404
  Transmission Date: 20160815
  Serious: Yes (Hospitalization)
  Sender: FDA-Public Use
  Company Number: US-DRREDDYS-USA/USA/16/0078288

PATIENT
  Age: 63 Year
  Sex: Male

DRUGS (4)
  1. FLUCONAZOLE. [Suspect]
     Active Substance: FLUCONAZOLE
     Indication: PROPHYLAXIS
     Route: 065
  2. CYTARABINE. [Suspect]
     Active Substance: CYTARABINE
     Indication: ACUTE MYELOID LEUKAEMIA
     Route: 065
  3. LEVOFLOXACIN TABLETS [Suspect]
     Active Substance: LEVOFLOXACIN
     Indication: PROPHYLAXIS
     Route: 065
  4. ACYCLOVIR. [Suspect]
     Active Substance: ACYCLOVIR
     Indication: PROPHYLAXIS
     Route: 065

REACTIONS (14)
  - Respiratory distress [Unknown]
  - Asthenia [Unknown]
  - Pancytopenia [Unknown]
  - Pleural effusion [Unknown]
  - Tachypnoea [Unknown]
  - Acute kidney injury [Unknown]
  - Cough [Unknown]
  - Blood glucose increased [Unknown]
  - Atelectasis [Unknown]
  - Drug resistance [Unknown]
  - Pleuritic pain [Unknown]
  - Fusarium infection [Unknown]
  - Vomiting [Unknown]
  - Pyrexia [Unknown]
